FAERS Safety Report 8105570-8 (Version None)
Quarter: 2012Q1

REPORT INFORMATION
  Report Type: 
  Country: None (occurrence: None)
  Receive Date: 20120201
  Receipt Date: 20120118
  Transmission Date: 20120608
  Serious: Yes (Other)
  Sender: FDA-Public Use
  Company Number: ZA-ROCHE-1009653

PATIENT
  Sex: Male

DRUGS (5)
  1. LUCENTIS [Suspect]
     Route: 050
     Dates: start: 20110701
  2. LUCENTIS [Suspect]
     Route: 050
     Dates: start: 20110506
  3. LUCENTIS [Suspect]
     Route: 050
     Dates: start: 20110902
  4. LUCENTIS [Suspect]
     Indication: AGE-RELATED MACULAR DEGENERATION
     Route: 050
  5. LUCENTIS [Suspect]
     Route: 050
     Dates: start: 20111111

REACTIONS (4)
  - VISUAL ACUITY REDUCED [None]
  - RETINAL OEDEMA [None]
  - RETINAL DISORDER [None]
  - MACULAR DEGENERATION [None]
